FAERS Safety Report 19029893 (Version 1)
Quarter: 2021Q1

REPORT INFORMATION
  Report Type: Report from Study
  Country: CN (occurrence: CN)
  Receive Date: 20210318
  Receipt Date: 20210318
  Transmission Date: 20210420
  Serious: Yes (Hospitalization, Other)
  Sender: FDA-Public Use
  Company Number: CN-BRISTOL-MYERS SQUIBB COMPANY-BMS-2021-025276

PATIENT
  Age: 53 Year
  Sex: Female

DRUGS (1)
  1. NIVOLUMAB [Suspect]
     Active Substance: NIVOLUMAB
     Indication: SQUAMOUS CELL CARCINOMA OF HEAD AND NECK
     Dosage: 140 MILLIGRAM, Q2WK
     Route: 065
     Dates: start: 20200901, end: 20210310

REACTIONS (4)
  - Intracranial infection [Unknown]
  - Malignant neoplasm progression [Unknown]
  - Cerebrospinal fluid leakage [Unknown]
  - Electrolyte imbalance [Unknown]

NARRATIVE: CASE EVENT DATE: 20210310
